FAERS Safety Report 6254772-4 (Version None)
Quarter: 2009Q3

REPORT INFORMATION
  Report Type: 
  Country: None (occurrence: None)
  Receive Date: 20090702
  Receipt Date: 20090624
  Transmission Date: 20100115
  Serious: Yes (Other)
  Sender: FDA-Public Use
  Company Number: MX-ELI_LILLY_AND_COMPANY-MX200906006247

PATIENT
  Age: 83 Year
  Sex: Female
  Weight: 40 kg

DRUGS (6)
  1. FORTEO [Suspect]
     Indication: OSTEOPOROSIS
     Dosage: 20 UG, DAILY (1/D)
     Route: 058
     Dates: start: 20090201
  2. TAFIL [Concomitant]
     Indication: SLEEP DISORDER
     Dosage: 1 MG, DAILY (1/D)
     Route: 065
  3. PAXIL [Concomitant]
     Indication: ANTIDEPRESSANT THERAPY
     Dosage: 10 MG, UNKNOWN
     Route: 065
  4. COUMADIN [Concomitant]
     Dosage: UNK, DAILY (1/D)
     Route: 065
  5. SINUBERASE [Concomitant]
     Dosage: UNK, DAILY (1/D)
     Route: 065
  6. DIGOXIN [Concomitant]
     Indication: CARDIAC DISORDER
     Dosage: UNK, 5/W
     Route: 065

REACTIONS (2)
  - BONE FISSURE [None]
  - FALL [None]
